FAERS Safety Report 4753803-8 (Version None)
Quarter: 2005Q3

REPORT INFORMATION
  Report Type: 
  Country: None (occurrence: None)
  Receive Date: 20050823
  Receipt Date: 20050622
  Transmission Date: 20060218
  Serious: No
  Sender: FDA-Public Use
  Company Number: 215605

PATIENT
  Age: 34 Year
  Sex: Female
  Weight: 63.5 kg

DRUGS (1)
  1. RAPTIVA [Suspect]
     Indication: PSORIASIS
     Dosage: 64MG 1/WEEK SUBCUTANEOUS
     Route: 058
     Dates: start: 20050615

REACTIONS (2)
  - OCULAR HYPERAEMIA [None]
  - VISION BLURRED [None]
